FAERS Safety Report 6207518-X (Version None)
Quarter: 2009Q2

REPORT INFORMATION
  Report Type: 
  Country: None (occurrence: None)
  Receive Date: 20090526
  Receipt Date: 20090511
  Transmission Date: 20091009
  Serious: No
  Sender: FDA-Public Use
  Company Number: 1000005786

PATIENT
  Sex: Female

DRUGS (1)
  1. ESCITALOPRAM [Suspect]
     Dosage: 20 MG (20 MG, 1 IN 1 D)

REACTIONS (4)
  - ABORTION SPONTANEOUS [None]
  - DRUG EXPOSURE DURING PREGNANCY [None]
  - TOXOPLASMOSIS [None]
  - TWIN PREGNANCY [None]
